FAERS Safety Report 4309419-0 (Version None)
Quarter: 2004Q1

REPORT INFORMATION
  Report Type: 
  Country: None (occurrence: None)
  Receive Date: 20040301
  Receipt Date: 20040220
  Transmission Date: 20041129
  Serious: Yes (Other)
  Sender: FDA-Public Use
  Company Number: 2004-02-1448

PATIENT
  Age: 42 Year
  Sex: Female
  Weight: 68 kg

DRUGS (5)
  1. TEMODAL [Suspect]
     Indication: GLIOBLASTOMA
     Dosage: 50-350MG X5D ORAL
     Route: 048
     Dates: start: 20031201, end: 20031201
  2. TEMODAL [Suspect]
     Indication: GLIOBLASTOMA
     Dosage: 50-350MG X5D ORAL
     Route: 048
     Dates: start: 20031101, end: 20040110
  3. TEMODAL [Suspect]
     Indication: GLIOBLASTOMA
     Dosage: 50-350MG X5D ORAL
     Route: 048
     Dates: start: 20040106, end: 20040110
  4. OFLOXACIN TABLETS [Suspect]
     Indication: INFECTION
     Dosage: ORAL
     Route: 048
  5. IRON TABLETS [Suspect]
     Indication: IRON DEFICIENCY
     Dosage: ORAL
     Route: 048

REACTIONS (2)
  - GAMMA-GLUTAMYLTRANSFERASE INCREASED [None]
  - HEPATIC ENZYME INCREASED [None]
